FAERS Safety Report 15535776 (Version 1)
Quarter: 2018Q4

REPORT INFORMATION
  Report Type: Spontaneous
  Country: US (occurrence: US)
  Receive Date: 20181020
  Receipt Date: 20181020
  Transmission Date: 20190205
  Serious: No
  Sender: FDA-Public Use
  Company Number: None

PATIENT
  Age: 57 Year
  Sex: Male
  Weight: 81 kg

DRUGS (1)
  1. EFFEXOR [Suspect]
     Active Substance: VENLAFAXINE HYDROCHLORIDE
     Indication: DEPRESSION
     Dosage: ?          QUANTITY:1 TABLET(S);?
     Route: 048
     Dates: start: 20171001

REACTIONS (9)
  - Withdrawal syndrome [None]
  - Aggression [None]
  - Dizziness [None]
  - Diarrhoea [None]
  - Paraesthesia [None]
  - Pain [None]
  - Anxiety [None]
  - Muscle spasms [None]
  - Influenza like illness [None]

NARRATIVE: CASE EVENT DATE: 20180831
